FAERS Safety Report 6644940-1 (Version None)
Quarter: 2010Q1

REPORT INFORMATION
  Report Type: 
  Country: None (occurrence: None)
  Receive Date: 20100322
  Receipt Date: 20100309
  Transmission Date: 20100710
  Serious: Yes (Other)
  Sender: FDA-Public Use
  Company Number: PHHY2010DE07319

PATIENT
  Sex: Female
  Weight: 57 kg

DRUGS (1)
  1. CYCLOSPORINE [Suspect]
     Indication: NEURODERMATITIS
     Dosage: 300 MG/DAY
     Route: 048
     Dates: start: 20091123, end: 20100131

REACTIONS (7)
  - ABDOMINAL PAIN UPPER [None]
  - DYSMENORRHOEA [None]
  - HERPES ZOSTER [None]
  - MENORRHAGIA [None]
  - NASOPHARYNGITIS [None]
  - NEURALGIA [None]
  - UTERINE DILATION AND CURETTAGE [None]
